FAERS Safety Report 6538433-X (Version None)
Quarter: 2010Q1

REPORT INFORMATION
  Report Type: 
  Country: None (occurrence: None)
  Receive Date: 20100110
  Receipt Date: 20091218
  Transmission Date: 20100710
  Serious: Yes (Hospitalization)
  Sender: FDA-Public Use
  Company Number: WAES 0911GBR00111

PATIENT
  Age: 57 Year
  Sex: Male

DRUGS (9)
  1. TAB LAROPIPRANT (+) NIACIN [Suspect]
     Indication: HIGH DENSITY LIPOPROTEIN DECREASED
     Dosage: PO
     Route: 048
     Dates: start: 20091110, end: 20091120
  2. ZOCOR [Suspect]
     Indication: HYPERCHOLESTEROLAEMIA
     Dosage: 40 MG/PO
     Route: 048
     Dates: start: 20091110, end: 20091120
  3. ALBUTEROL [Concomitant]
  4. ALLOPURINOL [Concomitant]
  5. ASPIRIN [Concomitant]
  6. BISOPROLOL FUMARATE [Concomitant]
  7. CANDESARTAN CILEXETIL [Concomitant]
  8. GLUCOSAMINE [Concomitant]
  9. PANTOPRAZOLE [Concomitant]

REACTIONS (2)
  - FLUSHING [None]
  - PALPITATIONS [None]
